FAERS Safety Report 7814378-X (Version None)
Quarter: 2011Q4

REPORT INFORMATION
  Report Type: 
  Country: None (occurrence: None)
  Receive Date: 20111011
  Receipt Date: 20111003
  Transmission Date: 20120403
  Serious: Yes (Other)
  Sender: FDA-Public Use
  Company Number: 2011SP041193

PATIENT
  Age: 23 Year
  Sex: Female
  Weight: 67.1324 kg

DRUGS (1)
  1. IMPLANON [Suspect]
     Indication: CONTRACEPTION
     Dosage: 1 DF; SBDE
     Route: 059
     Dates: start: 20110830

REACTIONS (2)
  - SWELLING FACE [None]
  - ERYTHEMA [None]
